FAERS Safety Report 11443572 (Version 7)
Quarter: 2018Q3

REPORT INFORMATION
  Report Type: Report from Study
  Country: US (occurrence: US)
  Receive Date: 20150901
  Receipt Date: 20180911
  Transmission Date: 20181010
  Serious: Yes (Death, Hospitalization)
  Sender: FDA-Public Use
  Company Number: US-ACTELION-A-NJ2015-123190

PATIENT
  Age: 70 Year
  Sex: Female

DRUGS (8)
  1. OPSUMIT [Suspect]
     Active Substance: MACITENTAN
     Dosage: 10 MG, QD
     Route: 048
     Dates: start: 20150925, end: 20151011
  2. DAPSONE. [Concomitant]
     Active Substance: DAPSONE
     Dosage: UNK
     Dates: start: 2015
  3. OPSUMIT [Suspect]
     Active Substance: MACITENTAN
     Indication: PULMONARY ARTERIAL HYPERTENSION
     Dosage: 10 MG, QD
     Route: 048
     Dates: start: 20150613, end: 20150916
  4. PREDNISONE. [Concomitant]
     Active Substance: PREDNISONE
     Dosage: UNK
     Dates: start: 2015
  5. ADCIRCA [Concomitant]
     Active Substance: TADALAFIL
  6. COUMADIN [Concomitant]
     Active Substance: WARFARIN SODIUM
  7. CELLCEPT [Concomitant]
     Active Substance: MYCOPHENOLATE MOFETIL\MYCOPHENOLATE MOFETIL HYDROCHLORIDE
     Dosage: UNK
     Dates: start: 20150701
  8. MUPIROCIN. [Concomitant]
     Active Substance: MUPIROCIN
     Dosage: UNK
     Dates: start: 20150725

REACTIONS (27)
  - Pneumothorax [Unknown]
  - Chest pain [Unknown]
  - Bradycardia [Unknown]
  - Klebsiella bacteraemia [Recovered/Resolved]
  - White blood cell count increased [Recovered/Resolved]
  - Skin plaque [Recovered/Resolved]
  - Nausea [Recovered/Resolved]
  - Vomiting [Unknown]
  - Pemphigoid [Recovered/Resolved]
  - Haemothorax [Recovered/Resolved]
  - Dyspnoea [Recovered/Resolved]
  - Cough [Recovered/Resolved]
  - Gastritis [Unknown]
  - Retching [Recovered/Resolved]
  - Respiratory disorder [Unknown]
  - Sepsis [Fatal]
  - Skin infection [Fatal]
  - Calciphylaxis [Unknown]
  - Pneumonia [Recovered/Resolved]
  - Pyrexia [Recovered/Resolved]
  - Chills [Recovered/Resolved]
  - Oedema [Fatal]
  - Impaired gastric emptying [Unknown]
  - Skin ulcer [Recovered/Resolved]
  - Abdominal pain [Unknown]
  - Hypotension [Unknown]
  - Oliguria [Unknown]

NARRATIVE: CASE EVENT DATE: 20150724
